FAERS Safety Report 7237686-2 (Version None)
Quarter: 2011Q1

REPORT INFORMATION
  Report Type: 
  Country: None (occurrence: None)
  Receive Date: 20110121
  Receipt Date: 20110112
  Transmission Date: 20110831
  Serious: Yes (Other)
  Sender: FDA-Public Use
  Company Number: BR-JNJFOC-20110104821

PATIENT
  Sex: Male
  Weight: 56 kg

DRUGS (7)
  1. REMICADE [Suspect]
     Indication: CROHN'S DISEASE
     Dosage: 2ND DOSE
     Route: 042
  2. MESALAZINE [Concomitant]
     Indication: GASTROINTESTINAL DISORDER
  3. REMICADE [Suspect]
     Dosage: 5TH DOSE
     Route: 042
  4. REMICADE [Suspect]
     Dosage: 3RD DOSE
     Route: 042
  5. REMICADE [Suspect]
     Dosage: 4TH DOSE
     Route: 042
  6. REMICADE [Suspect]
     Dosage: 1ST DOSE
     Route: 042
  7. AZATHIOPRINE [Concomitant]
     Indication: CROHN'S DISEASE

REACTIONS (3)
  - RENAL COLIC [None]
  - POLYURIA [None]
  - ARTHRALGIA [None]
